FAERS Safety Report 19267654 (Version 1)
Quarter: 2021Q2

REPORT INFORMATION
  Report Type: Spontaneous
  Country: ES (occurrence: ES)
  Receive Date: 20210518
  Receipt Date: 20210518
  Transmission Date: 20210717
  Serious: Yes (Other)
  Sender: FDA-Public Use
  Company Number: ES-AUROBINDO-AUR-APL-2019-082544

PATIENT
  Age: 42 Year

DRUGS (4)
  1. OLANZAPINE. [Concomitant]
     Active Substance: OLANZAPINE
     Indication: DEPRESSION
     Dosage: 10 MILLIGRAM
     Route: 065
  2. VENLAFAXINE [Suspect]
     Active Substance: VENLAFAXINE HYDROCHLORIDE
     Indication: DEPRESSION
     Dosage: 150 MILLIGRAM, RETARD
     Route: 065
  3. TOPIRAMATE. [Suspect]
     Active Substance: TOPIRAMATE
     Indication: WEIGHT DECREASED
     Dosage: UNK
     Route: 065
  4. LORAZEPAM. [Concomitant]
     Active Substance: LORAZEPAM
     Indication: DEPRESSION
     Dosage: 2 MILLIGRAM
     Route: 065

REACTIONS (7)
  - Pseudomyopia [Recovering/Resolving]
  - Corneal oedema [Recovered/Resolved]
  - Acute myopia [Recovering/Resolving]
  - Angle closure glaucoma [Recovering/Resolving]
  - Visual acuity reduced [Recovering/Resolving]
  - Choroidal detachment [Unknown]
  - Conjunctival oedema [Recovered/Resolved]
